FAERS Safety Report 9495047 (Version 1)
Quarter: 2013Q3

REPORT INFORMATION
  Report Type: Spontaneous
  Country: NO (occurrence: NO)
  Receive Date: 20130903
  Receipt Date: 20130903
  Transmission Date: 20140515
  Serious: Yes (Death)
  Sender: FDA-Public Use
  Company Number: NO-SANOFI-AVENTIS-2013SA085623

PATIENT
  Age: 87 Year
  Sex: Male

DRUGS (8)
  1. PLAVIX [Suspect]
     Indication: PERCUTANEOUS CORONARY INTERVENTION
     Route: 048
     Dates: start: 201211
  2. MAREVAN [Suspect]
     Indication: PRODUCT USED FOR UNKNOWN INDICATION
     Dosage: 14 TABLETS/WEEK
     Route: 048
  3. ALBYL-E [Suspect]
     Indication: PERCUTANEOUS CORONARY INTERVENTION
     Route: 048
     Dates: start: 201211
  4. RAMIPRIL [Concomitant]
     Indication: CARDIAC FAILURE
     Route: 048
  5. AMARYL [Concomitant]
     Indication: DIABETES MELLITUS
  6. SOMAC [Concomitant]
     Route: 048
  7. SELO-ZOK [Concomitant]
     Indication: CARDIAC FAILURE
     Route: 048
  8. BURINEX [Concomitant]
     Indication: CARDIAC FAILURE
     Route: 048

REACTIONS (2)
  - Death [Fatal]
  - Cerebral haematoma [Fatal]
